FAERS Safety Report 7107088-8 (Version None)
Quarter: 2010Q4

REPORT INFORMATION
  Report Type: 
  Country: None (occurrence: None)
  Receive Date: 20101116
  Receipt Date: 20101111
  Transmission Date: 20110411
  Serious: Yes (Life-Threatening, Hospitalization, Other)
  Sender: FDA-Public Use
  Company Number: DE-ABBOTT-10P-062-0678483-00

PATIENT
  Sex: Female

DRUGS (6)
  1. CLARITHROMYCIN [Suspect]
     Indication: PRODUCT USED FOR UNKNOWN INDICATION
     Dosage: OVERDOSE: 3000MG(SINGLE DOSAGE),6 IN 1 D
     Route: 048
     Dates: start: 20101007, end: 20101007
  2. ESCITALOPRAM [Suspect]
     Indication: PRODUCT USED FOR UNKNOWN INDICATION
     Dosage: UNKNOWN SINGLE DOSAGE
     Route: 048
     Dates: start: 20101007, end: 20101007
  3. PARACETAMOL [Suspect]
     Indication: PRODUCT USED FOR UNKNOWN INDICATION
     Dosage: OVERDOSE: 8000MG(SINGLE DOSAGE),16 IN 1D
     Route: 048
     Dates: start: 20101007, end: 20101007
  4. IBUPROFEN TABLETS [Suspect]
     Indication: PRODUCT USED FOR UNKNOWN INDICATION
     Dosage: OVERDOSE: 8000-12000 MG (SINGLE DOSAGE)
     Route: 048
     Dates: start: 20101007, end: 20101007
  5. BROMAZEPAM [Suspect]
     Indication: PRODUCT USED FOR UNKNOWN INDICATION
     Dosage: OVERDOSE: 180MG(SINGLE DOSAGE),30 IN 1D
     Route: 048
     Dates: start: 20101007, end: 20101007
  6. ALCOHOL [Suspect]
     Indication: PRODUCT USED FOR UNKNOWN INDICATION
     Dosage: OVERDOSE:UNKNOWN AMOUNT(1.4 PER MILLE)
     Dates: start: 20101007, end: 20101007

REACTIONS (5)
  - ACIDOSIS [None]
  - LOSS OF CONSCIOUSNESS [None]
  - MULTIPLE DRUG OVERDOSE INTENTIONAL [None]
  - RESPIRATORY DEPRESSION [None]
  - SUICIDE ATTEMPT [None]
